FAERS Safety Report 24528824 (Version 1)
Quarter: 2024Q4

REPORT INFORMATION
  Report Type: Spontaneous
  Country: DE (occurrence: DE)
  Receive Date: 20241021
  Receipt Date: 20241021
  Transmission Date: 20250114
  Serious: Yes (Other)
  Sender: UCB
  Company Number: DE-UCBSA-2024053589

PATIENT
  Age: 28 Year

DRUGS (5)
  1. BRIVIACT [Suspect]
     Active Substance: BRIVARACETAM
     Indication: Lennox-Gastaut syndrome
     Dosage: UNK
  2. BRIVIACT [Suspect]
     Active Substance: BRIVARACETAM
     Indication: Off label use
  3. CENOBAMATE [Concomitant]
     Active Substance: CENOBAMATE
     Indication: Product used for unknown indication
     Dosage: UNK
  4. LORAZEPAM [Concomitant]
     Active Substance: LORAZEPAM
     Indication: Product used for unknown indication
     Dosage: UNK
  5. ZONISAMIDE [Concomitant]
     Active Substance: ZONISAMIDE
     Indication: Product used for unknown indication
     Dosage: UNK

REACTIONS (9)
  - Tonic convulsion [Not Recovered/Not Resolved]
  - Pneumonia [Unknown]
  - Rib fracture [Unknown]
  - Seizure [Not Recovered/Not Resolved]
  - Somnolence [Unknown]
  - Cyanosis [Unknown]
  - Dyspnoea [Unknown]
  - Decreased appetite [Unknown]
  - Off label use [Unknown]
